FAERS Safety Report 25321814 (Version 6)
Quarter: 2025Q4

REPORT INFORMATION
  Report Type: Spontaneous
  Country: US (occurrence: US)
  Receive Date: 20250516
  Receipt Date: 20251218
  Transmission Date: 20260119
  Serious: Yes (Other)
  Sender: CSL BEHRING
  Company Number: US-BEH-2025204433

PATIENT
  Age: 18 Month
  Sex: Female

DRUGS (9)
  1. HUMATE-P [Suspect]
     Active Substance: HUMAN COAGULATION FACTOR VIII/VON WILLEBRAND FACTOR COMPLEX
     Indication: Von Willebrand^s disease
     Dosage: 585 RCOF UNITS, BIW
     Route: 042
     Dates: start: 202501
  2. HUMATE-P [Suspect]
     Active Substance: HUMAN COAGULATION FACTOR VIII/VON WILLEBRAND FACTOR COMPLEX
     Dosage: 585 RCOF UNITS, PRN
     Route: 042
     Dates: start: 202501
  3. HUMATE-P [Suspect]
     Active Substance: HUMAN COAGULATION FACTOR VIII/VON WILLEBRAND FACTOR COMPLEX
     Dosage: 532-756 RCOF UNITS, PRN
     Route: 042
     Dates: start: 202501
  4. HUMATE-P [Suspect]
     Active Substance: HUMAN COAGULATION FACTOR VIII/VON WILLEBRAND FACTOR COMPLEX
     Dosage: 532-756  RCOF UNITS, BIW
     Route: 042
     Dates: start: 202501
  5. HUMATE-P [Suspect]
     Active Substance: HUMAN COAGULATION FACTOR VIII/VON WILLEBRAND FACTOR COMPLEX
     Dosage: 1020-1088 RCOF UNITS, TWICE WEEKLY / AS NEED
     Route: 042
     Dates: start: 202501
  6. AMINOCAPROIC ACID [Concomitant]
     Active Substance: AMINOCAPROIC ACID
  7. LIDOCAINE\PRILOCAINE [Concomitant]
     Active Substance: LIDOCAINE\PRILOCAINE
  8. SODIUM CHLORIDE [Concomitant]
     Active Substance: SODIUM CHLORIDE
     Dosage: FLUSH (10ML)
  9. HEPARIN [Concomitant]
     Active Substance: HEPARIN SODIUM

REACTIONS (10)
  - Haemorrhage [Unknown]
  - Haemarthrosis [Recovered/Resolved]
  - Thrombosis in device [Recovered/Resolved]
  - Haemorrhage [Unknown]
  - Haemorrhage [Unknown]
  - Contusion [Unknown]
  - Contusion [Unknown]
  - Pyrexia [Unknown]
  - Device issue [Recovered/Resolved]
  - Therapy change [Unknown]

NARRATIVE: CASE EVENT DATE: 20250201
